FAERS Safety Report 4799869-0 (Version None)
Quarter: 2005Q4

REPORT INFORMATION
  Report Type: 
  Country: None (occurrence: None)
  Receive Date: 20051017
  Receipt Date: 20050524
  Transmission Date: 20060501
  Serious: Yes (Death, Hospitalization)
  Sender: FDA-Public Use
  Company Number: US-BRISTOL-MYERS SQUIBB COMPANY-12979936

PATIENT
  Age: 68 Year
  Sex: Female
  Weight: 65 kg

DRUGS (5)
  1. BEVACIZUMAB [Suspect]
     Indication: PANCREATIC CARCINOMA
     Route: 042
     Dates: start: 20050511, end: 20050511
  2. GEMCITABINE [Suspect]
     Indication: PANCREATIC CARCINOMA
     Route: 042
     Dates: start: 20050511, end: 20050511
  3. TARCEVA [Suspect]
     Indication: PANCREATIC CARCINOMA
     Route: 048
     Dates: start: 20050501, end: 20050520
  4. MEGACE [Suspect]
     Dates: start: 20050511
  5. RITALIN [Suspect]
     Dates: start: 20050518

REACTIONS (2)
  - CEREBRAL ISCHAEMIA [None]
  - MYOCARDIAL ISCHAEMIA [None]
